FAERS Safety Report 5183858-0 (Version None)
Quarter: 2006Q4

REPORT INFORMATION
  Report Type: 
  Country: None (occurrence: None)
  Receive Date: 20061220
  Receipt Date: 20060111
  Transmission Date: 20070319
  Serious: Yes (Other)
  Sender: FDA-Public Use
  Company Number: PHNU2006DE00522

PATIENT
  Age: 60 Year
  Sex: Male
  Weight: 72 kg

DRUGS (2)
  1. CHEMOTHERAPEUTICS,OTHER [Concomitant]
     Route: 065
     Dates: start: 20041101, end: 20050401
  2. ZOMETA [Suspect]
     Indication: MULTIPLE MYELOMA
     Dosage: 4 MG, QMO
     Route: 042
     Dates: end: 20050901

REACTIONS (4)
  - BONE DISORDER [None]
  - DENTAL OPERATION [None]
  - OSTEOTOMY [None]
  - TOOTH EXTRACTION [None]
